FAERS Safety Report 5513238-7 (Version None)
Quarter: 2007Q4

REPORT INFORMATION
  Report Type: 
  Country: None (occurrence: None)
  Receive Date: 20071108
  Receipt Date: 20071031
  Transmission Date: 20080405
  Serious: Yes (Life-Threatening, Hospitalization)
  Sender: FDA-Public Use
  Company Number: 128-20785-07100559

PATIENT
  Age: 68 Year
  Sex: Female

DRUGS (5)
  1. THALIDOMIDE [Suspect]
     Indication: MULTIPLE MYELOMA
     Dosage: 200 MG, 4 IN 1 D, ORAL
     Route: 048
     Dates: start: 20070730, end: 20070906
  2. THALIDOMIDE [Suspect]
     Indication: MULTIPLE MYELOMA
     Dosage: 200 MG, 4 IN 1 D, ORAL
     Route: 048
     Dates: start: 20070918, end: 20071009
  3. LOSARTAN POTASSIUM [Concomitant]
  4. LEVOFLOXACIN [Concomitant]
  5. FELODIPINE [Concomitant]

REACTIONS (14)
  - CARDIAC FAILURE [None]
  - CARDIOMYOPATHY [None]
  - CHEST PAIN [None]
  - DENGUE FEVER [None]
  - DYSPNOEA [None]
  - ELECTROCARDIOGRAM ST SEGMENT ELEVATION [None]
  - HYPERTENSION [None]
  - MYOCARDITIS [None]
  - PNEUMONIA [None]
  - PRODUCTIVE COUGH [None]
  - PULMONARY OEDEMA [None]
  - RASH [None]
  - UPPER RESPIRATORY TRACT INFECTION [None]
  - VIRAL MYOCARDITIS [None]
